FAERS Safety Report 24537825 (Version 1)
Quarter: 2024Q4

REPORT INFORMATION
  Report Type: Spontaneous
  Country: DE (occurrence: DE)
  Receive Date: 20241023
  Receipt Date: 20241023
  Transmission Date: 20250115
  Serious: Yes (Other)
  Sender: SANDOZ
  Company Number: DE-BRISTOL-MYERS SQUIBB COMPANY-2024-153019

PATIENT
  Age: 43 Year
  Sex: Female
  Weight: 100.2 kg

DRUGS (18)
  1. FLUOROURACIL [Suspect]
     Active Substance: FLUOROURACIL
     Indication: Gastric cancer
     Dosage: 6230 MG, FREQUENCY 1
     Route: 042
     Dates: start: 20240814
  2. OXALIPLATIN [Suspect]
     Active Substance: OXALIPLATIN
     Indication: Gastric cancer
     Dosage: 189 MG, FREQUENCY 1
     Route: 042
     Dates: start: 20240814
  3. OPDIVO [Suspect]
     Active Substance: NIVOLUMAB
     Indication: Gastric cancer
     Dosage: 240 MG, BIW
     Route: 042
     Dates: start: 20240814
  4. ACETAMINOPHEN [Concomitant]
     Active Substance: ACETAMINOPHEN
     Indication: Prophylaxis
     Dosage: 500 MG, AS NEEDED
     Route: 048
     Dates: start: 20240815
  5. DEXAMETHASONE [Concomitant]
     Active Substance: DEXAMETHASONE
     Indication: Prophylaxis
     Dosage: 8 MG, QD, TO EACH CHEMO CYCLE
     Route: 042
     Dates: start: 20240814
  6. DEXAMETHASONE [Concomitant]
     Active Substance: DEXAMETHASONE
     Dosage: 8 MG, QD, TO EACH CHEMO CYCLE
     Route: 048
     Dates: start: 20240815
  7. DEXAMETHASONE [Concomitant]
     Active Substance: DEXAMETHASONE
     Dosage: 8 MG, AS NEEDED
     Route: 048
     Dates: start: 20240816
  8. DIMENHYDRINATE [Concomitant]
     Active Substance: DIMENHYDRINATE
     Dosage: 50 MG, QD, AS NEEDED
     Route: 048
     Dates: start: 20240913
  9. DIMENHYDRINATE [Concomitant]
     Active Substance: DIMENHYDRINATE
     Indication: Prophylaxis
     Dosage: 62 MG, QD, AS NEEDED
     Route: 042
     Dates: start: 20240815
  10. ENOXAPARIN [Concomitant]
     Active Substance: ENOXAPARIN
     Dosage: 0.3 ML, QD, WITH EACH CHEMO CYCLE
     Route: 058
     Dates: start: 20240828, end: 20240910
  11. ENOXAPARIN [Concomitant]
     Active Substance: ENOXAPARIN
     Indication: Prophylaxis
     Dosage: 0.4 ML, QD, WITH EACH CHEMO CYCLE
     Route: 058
     Dates: start: 20240911
  12. ESOMEPRAZOLE [Concomitant]
     Active Substance: ESOMEPRAZOLE
     Indication: Prophylaxis
     Dosage: 20 MG
     Route: 048
     Dates: start: 20240717
  13. FOLIC ACID [Concomitant]
     Active Substance: FOLIC ACID
     Indication: Prophylaxis
     Dosage: 890 MG, QD, TO EACH CHEMO CYCLE
     Route: 042
     Dates: start: 20240814
  14. GRANISETRON [Concomitant]
     Active Substance: GRANISETRON
     Indication: Prophylaxis
     Dosage: 1 MG, QD, TO EACH CHEMO CYCLE
     Route: 042
     Dates: start: 20240814
  15. GRANISETRON [Concomitant]
     Active Substance: GRANISETRON
     Dosage: 3 MG, AS NEEDED
     Route: 042
     Dates: start: 20240815
  16. METAMIZOLE [Concomitant]
     Active Substance: METAMIZOLE
     Indication: Product used for unknown indication
     Dosage: 750 MG, AS NEEDED
     Route: 048
     Dates: start: 20240829
  17. POTASSIUM CHLORIDE [Concomitant]
     Active Substance: POTASSIUM CHLORIDE
     Indication: Product used for unknown indication
     Dosage: 1200 ML, QD, RETARD AS NEEDED
     Route: 048
     Dates: start: 20240828
  18. POTASSIUM CHLORIDE [Concomitant]
     Active Substance: POTASSIUM CHLORIDE
     Dosage: 20 MMOL
     Route: 042
     Dates: start: 20240828

REACTIONS (1)
  - Leukopenia [Not Recovered/Not Resolved]

NARRATIVE: CASE EVENT DATE: 20240925
